FAERS Safety Report 9604153 (Version 8)
Quarter: 2014Q3

REPORT INFORMATION
  Report Type: Spontaneous
  Country: US (occurrence: US)
  Receive Date: 20131008
  Receipt Date: 20140905
  Transmission Date: 20150326
  Serious: Yes (Hospitalization, Other)
  Sender: FDA-Public Use
  Company Number: US-009507513-1310USA000440

PATIENT
  Sex: Female
  Weight: 89.34 kg

DRUGS (5)
  1. FOSAMAX [Suspect]
     Active Substance: ALENDRONATE SODIUM
     Indication: BONE DENSITY DECREASED
  2. FOSAMAX [Suspect]
     Active Substance: ALENDRONATE SODIUM
     Indication: OSTEOPOROSIS
     Dosage: 35 MG, UNK
     Route: 048
     Dates: start: 20070109, end: 20110215
  3. ALENDRONATE SODIUM. [Suspect]
     Active Substance: ALENDRONATE SODIUM
     Indication: OSTEOPOROSIS
     Dosage: 35 MG, QW
     Route: 048
     Dates: start: 20080312, end: 20110215
  4. FOSAMAX [Suspect]
     Active Substance: ALENDRONATE SODIUM
     Indication: OSTEOPENIA
  5. ATENOLOL. [Concomitant]
     Active Substance: ATENOLOL
     Indication: BLOOD PRESSURE
     Dosage: 25 MG, UNK
     Dates: start: 1990

REACTIONS (21)
  - Scoliosis [Unknown]
  - Torsade de pointes [Unknown]
  - Cholecystectomy [Unknown]
  - Hysterectomy [Unknown]
  - Femur fracture [Recovering/Resolving]
  - Head injury [Unknown]
  - Depression [Unknown]
  - Spinal osteoarthritis [Unknown]
  - Osteopenia [Unknown]
  - Haemorrhagic anaemia [Unknown]
  - Skin abrasion [Unknown]
  - Hypercholesterolaemia [Unknown]
  - Spinal deformity [Unknown]
  - Swelling face [Unknown]
  - Intramedullary rod insertion [Recovering/Resolving]
  - Cardiac pacemaker insertion [Unknown]
  - Spinal laminectomy [Unknown]
  - Dyspnoea exertional [Unknown]
  - Gout [Unknown]
  - Spinal osteoarthritis [Unknown]
  - Arthralgia [Unknown]

NARRATIVE: CASE EVENT DATE: 20071019
